FAERS Safety Report 4274294-X (Version None)
Quarter: 2004Q1

REPORT INFORMATION
  Report Type: 
  Country: None (occurrence: None)
  Receive Date: 20040115
  Receipt Date: 20040108
  Transmission Date: 20041129
  Serious: Yes (Hospitalization)
  Sender: FDA-Public Use
  Company Number: USA-2004-0012389

PATIENT
  Sex: Female

DRUGS (1)
  1. SPECTRACEF [Suspect]
     Indication: BRONCHITIS
     Dosage: ORAL
     Route: 048

REACTIONS (1)
  - COLITIS [None]
